FAERS Safety Report 4407374-6 (Version None)
Quarter: 2004Q3

REPORT INFORMATION
  Report Type: 
  Country: None (occurrence: None)
  Receive Date: 20040721
  Receipt Date: 20040630
  Transmission Date: 20050211
  Serious: Yes (Hospitalization)
  Sender: FDA-Public Use
  Company Number: 2004IM000736

PATIENT
  Age: 59 Year
  Sex: Female

DRUGS (5)
  1. INFERGEN [Suspect]
     Indication: HEPATITIS C
     Dosage: 18 MU; TIW; SUBCUTANEOUS
     Route: 058
     Dates: start: 20040408, end: 20040628
  2. INDOMETHACIN 25MG CAP [Concomitant]
  3. REBAMIPINE [Concomitant]
  4. BROTIZOLAM [Concomitant]
  5. SULPIRIDE [Concomitant]

REACTIONS (7)
  - AFFECTIVE DISORDER [None]
  - ANOREXIA [None]
  - ANXIETY [None]
  - DEPRESSION [None]
  - INSOMNIA [None]
  - MALAISE [None]
  - WEIGHT DECREASED [None]
